FAERS Safety Report 5082420-8 (Version None)
Quarter: 2006Q3

REPORT INFORMATION
  Report Type: 
  Country: None (occurrence: None)
  Receive Date: 20060817
  Receipt Date: 20060807
  Transmission Date: 20061208
  Serious: Yes (Death, Hospitalization)
  Sender: FDA-Public Use
  Company Number: H0072103

PATIENT
  Age: 37 Year
  Sex: Female

DRUGS (4)
  1. COMBIVIR [Suspect]
     Indication: HIV INFECTION
     Dosage: 1TAB TWICE PER DAY
     Route: 048
     Dates: start: 20031023, end: 20031107
  2. TENOFOVIR [Suspect]
     Indication: HIV INFECTION
     Dosage: 300MG PER DAY
     Route: 048
     Dates: start: 20031023, end: 20031107
  3. FLUCONAZOLE [Suspect]
     Dates: start: 20031107, end: 20031119
  4. COTRIMOXAZOLE [Concomitant]

REACTIONS (11)
  - ASTHENIA [None]
  - BLOOD POTASSIUM DECREASED [None]
  - BLOOD SODIUM DECREASED [None]
  - CONVULSION [None]
  - DIARRHOEA [None]
  - ENCEPHALITIS [None]
  - GENERAL PHYSICAL HEALTH DETERIORATION [None]
  - HEPATIC FAILURE [None]
  - HEPATIC STEATOSIS [None]
  - MENINGITIS CRYPTOCOCCAL [None]
  - VOMITING [None]
